FAERS Safety Report 8462545-7 (Version None)
Quarter: 2012Q2

REPORT INFORMATION
  Report Type: 
  Country: None (occurrence: None)
  Receive Date: 20120607
  Receipt Date: 20120531
  Transmission Date: 20120825
  Serious: Yes (Hospitalization)
  Sender: FDA-Public Use
  Company Number: 2012031342

PATIENT
  Age: 64 Year
  Sex: Female
  Weight: 80.7403 kg

DRUGS (26)
  1. ESTRADIOL [Concomitant]
  2. NEXIUM [Concomitant]
  3. WELLBUTRIN [Concomitant]
  4. LOVAZA [Concomitant]
  5. EPINEPHRINE [Concomitant]
  6. HIZENTRA [Suspect]
     Indication: IMMUNODEFICIENCY COMMON VARIABLE
  7. XYZAL [Concomitant]
  8. PATANASE [Concomitant]
  9. LOVAZA (FISH OIL) [Concomitant]
  10. LIDOCAINE/PRILOCAINE (EMLA) [Concomitant]
  11. HIZENTRA [Suspect]
     Indication: IMMUNODEFICIENCY COMMON VARIABLE
     Dosage: (8G 2X/WEEK, 4 GM (2 ML) ON TWO TO FIVE SITES OVER 1-1.5 HOURS, SUBCUTANEOUS
     Route: 058
     Dates: start: 20120204, end: 20120204
  12. VERAMYST (FLUTICASONE) [Concomitant]
  13. RHINOCORT [Concomitant]
  14. HIZENTRA [Suspect]
     Indication: IMMUNODEFICIENCY COMMON VARIABLE
     Dosage: *8 G 2X/WEEK, 4 GM (2 ML) ON FIVE SITES OVER 1-1.5 HOURS SUBCUTANEOUS
     Route: 058
     Dates: start: 20120224, end: 20120531
  15. CELEBREX [Concomitant]
  16. NEURONTIN [Concomitant]
  17. LIDODERM [Concomitant]
  18. PREVACID [Concomitant]
  19. MECLIZINE [Concomitant]
  20. PAXIL [Concomitant]
  21. ADAIR (SERETIDE) [Concomitant]
  22. CALCIUM [Concomitant]
  23. VITAMIN B12 (VITAMIN B12 NOS) [Concomitant]
  24. DIPHENHYDRAMINE HCL [Concomitant]
  25. ROBAXIN [Concomitant]
  26. MULTI-VITAMIN [Concomitant]

REACTIONS (6)
  - FATIGUE [None]
  - PAIN [None]
  - INFUSION SITE ERYTHEMA [None]
  - FLUSHING [None]
  - HEADACHE [None]
  - INFUSION SITE SWELLING [None]
